FAERS Safety Report 7889750-2 (Version None)
Quarter: 2011Q4

REPORT INFORMATION
  Report Type: 
  Country: None (occurrence: None)
  Receive Date: 20111103
  Receipt Date: 20111021
  Transmission Date: 20120403
  Serious: Yes (Hospitalization)
  Sender: FDA-Public Use
  Company Number: GB-MYLANLABS-2011S1021984

PATIENT
  Age: 26 Year
  Sex: Female

DRUGS (4)
  1. HEPARIN [Concomitant]
     Indication: MIXED CONNECTIVE TISSUE DISEASE
  2. HYDROXYCHLOROQUINE SULFATE [Suspect]
     Indication: MIXED CONNECTIVE TISSUE DISEASE
  3. AZATHIOPRINE [Suspect]
     Indication: MIXED CONNECTIVE TISSUE DISEASE
  4. PREDNISOLONE [Suspect]
     Indication: MIXED CONNECTIVE TISSUE DISEASE

REACTIONS (1)
  - HERPES ZOSTER [None]
